FAERS Safety Report 21595188 (Version 1)
Quarter: 2022Q4

REPORT INFORMATION
  Report Type: Spontaneous
  Country: US (occurrence: US)
  Receive Date: 20221115
  Receipt Date: 20221115
  Transmission Date: 20230113
  Serious: Yes (Other)
  Sender: FDA-Public Use
  Company Number: US-AUROBINDO-AUR-APL-2022-048020

PATIENT
  Age: 72 Year
  Sex: Male

DRUGS (9)
  1. DEXAMETHASONE [Suspect]
     Active Substance: DEXAMETHASONE
     Indication: Septic shock
     Dosage: 4 MILLIGRAM, ONCE A DAY
     Route: 065
  2. PREDNISONE [Suspect]
     Active Substance: PREDNISONE
     Indication: Systemic inflammatory response syndrome
     Dosage: 20 MILLIGRAM, ONCE A DAY
     Route: 065
  3. HYDROCORTISONE [Suspect]
     Active Substance: HYDROCORTISONE
     Indication: Septic shock
     Dosage: 50 MILLIGRAM, FOUR TIMES/DAY (TAPERING FROM A TOTAL DOSE OF 25-200 MG PER DAY)
     Route: 065
  4. HYDROCORTISONE [Suspect]
     Active Substance: HYDROCORTISONE
     Indication: Systemic inflammatory response syndrome
     Dosage: 100 MILLIGRAM, 3 TIMES A DAY
     Route: 065
  5. LEUCOVORIN [Concomitant]
     Active Substance: LEUCOVORIN
     Indication: Colorectal cancer metastatic
     Dosage: UNK UNK, CYCLICAL
     Route: 065
  6. FLUOROURACIL [Concomitant]
     Active Substance: FLUOROURACIL
     Indication: Colorectal cancer metastatic
     Dosage: UNK UNK, CYCLICAL
     Route: 065
  7. OXALIPLATIN [Concomitant]
     Active Substance: OXALIPLATIN
     Indication: Colorectal cancer metastatic
     Dosage: UNK, CYCLICAL
     Route: 065
  8. MICAFUNGIN [Concomitant]
     Active Substance: MICAFUNGIN
     Indication: Candida infection
     Dosage: UNK
     Route: 065
  9. NIVOLUMAB [Concomitant]
     Active Substance: NIVOLUMAB
     Indication: Colorectal cancer metastatic
     Dosage: UNK
     Route: 065

REACTIONS (3)
  - Adrenal insufficiency [Recovering/Resolving]
  - Drug withdrawal syndrome [Unknown]
  - Incorrect product administration duration [Unknown]
